FAERS Safety Report 5219083-4 (Version None)
Quarter: 2007Q1

REPORT INFORMATION
  Report Type: 
  Country: None (occurrence: None)
  Receive Date: 20070122
  Receipt Date: 20070108
  Transmission Date: 20070707
  Serious: Yes (Hospitalization)
  Sender: FDA-Public Use
  Company Number: WAES 0612USA03304

PATIENT
  Age: 71 Year
  Sex: Female
  Weight: 83.9154 kg

DRUGS (3)
  1. EMEND [Suspect]
     Dosage: PO
     Route: 048
     Dates: start: 20060101
  2. CAP VORINOSTAT [Suspect]
     Indication: ACUTE MYELOID LEUKAEMIA
     Dosage: 200 MG/TID/PO
     Route: 048
     Dates: start: 20061205, end: 20061212
  3. DECITABINE [Suspect]
     Indication: ACUTE MYELOID LEUKAEMIA
     Dosage: 10 MG/M[2]/DAILY/IV
     Route: 042
     Dates: start: 20061130, end: 20061204

REACTIONS (17)
  - ANGIOEDEMA [None]
  - ASPIRATION [None]
  - CEREBRAL HAEMORRHAGE [None]
  - CEREBRAL ISCHAEMIA [None]
  - CONFUSIONAL STATE [None]
  - DIARRHOEA [None]
  - DYSPHAGIA [None]
  - EPIGLOTTIC OEDEMA [None]
  - HYPERSENSITIVITY [None]
  - LARYNGEAL DISORDER [None]
  - LETHARGY [None]
  - MENINGEAL DISORDER [None]
  - MENTAL STATUS CHANGES [None]
  - PYELONEPHRITIS [None]
  - RENAL FAILURE [None]
  - URINARY TRACT INFECTION [None]
  - URINE OUTPUT DECREASED [None]
